FAERS Safety Report 5318379-5 (Version None)
Quarter: 2007Q2

REPORT INFORMATION
  Report Type: 
  Country: None (occurrence: None)
  Receive Date: 20070507
  Receipt Date: 20070427
  Transmission Date: 20071010
  Serious: Yes (Other)
  Sender: FDA-Public Use
  Company Number: DE-ABBOTT-07P-062-0366496-00

PATIENT
  Age: 52 Year
  Sex: Male
  Weight: 118 kg

DRUGS (5)
  1. HUMIRA [Suspect]
     Indication: PSORIATIC ARTHROPATHY
     Route: 058
     Dates: start: 20060701, end: 20070201
  2. HUMIRA [Suspect]
     Route: 058
     Dates: end: 20070403
  3. METHOTREXATE SODIUM [Concomitant]
     Indication: PSORIATIC ARTHROPATHY
  4. IBUPROFEN [Concomitant]
     Indication: PSORIATIC ARTHROPATHY
  5. CORTISONE ACETATE [Concomitant]
     Indication: PSORIATIC ARTHROPATHY
     Route: 048

REACTIONS (2)
  - CHOLECYSTITIS [None]
  - PANCREATITIS [None]
